FAERS Safety Report 10692288 (Version 3)
Quarter: 2015Q1

REPORT INFORMATION
  Report Type: Report from Study
  Country: IL (occurrence: IL)
  Receive Date: 20150106
  Receipt Date: 20150220
  Transmission Date: 20150720
  Serious: Yes (Hospitalization, Other)
  Sender: FDA-Public Use
  Company Number: IL-BIOGENIDEC-2014BI138611

PATIENT
  Age: 25 Year
  Sex: Female

DRUGS (2)
  1. TECFIDERA [Suspect]
     Active Substance: DIMETHYL FUMARATE
     Indication: MULTIPLE SCLEROSIS
     Route: 048
     Dates: start: 201410, end: 20141127
  2. DIPYRONE [Concomitant]
     Active Substance: DIPYRONE
     Indication: PAIN

REACTIONS (2)
  - Drug-induced liver injury [Not Recovered/Not Resolved]
  - Hepatitis toxic [Not Recovered/Not Resolved]

NARRATIVE: CASE EVENT DATE: 201411
